FAERS Safety Report 22326642 (Version 3)
Quarter: 2023Q2

REPORT INFORMATION
  Report Type: Report from Study
  Country: CA (occurrence: CA)
  Receive Date: 20230516
  Receipt Date: 20230524
  Transmission Date: 20230721
  Serious: Yes (Other)
  Sender: FDA-Public Use
  Company Number: CA-HLS-202300939

PATIENT
  Age: 65 Year
  Sex: Male
  Weight: 86 kg

DRUGS (24)
  1. CLOZARIL [Suspect]
     Active Substance: CLOZAPINE
     Indication: Product used for unknown indication
     Route: 048
     Dates: end: 20161121
  2. CLOZARIL [Suspect]
     Active Substance: CLOZAPINE
     Indication: Product used for unknown indication
     Dosage: RESTARTED 13-MAR-2023: 100MG  TWICE A DAY (LIMIT THE CONSUMPTION OF CAFFEINE)
     Route: 048
  3. BISOPROLOL FUMARATE [Concomitant]
     Active Substance: BISOPROLOL FUMARATE
     Indication: Product used for unknown indication
     Dosage: 1.25MG ONCE A DAY (DON^T GIVE IF PULSE{ 56)
     Route: 065
  4. BENADRYL [Concomitant]
     Active Substance: DIPHENHYDRAMINE HYDROCHLORIDE
     Indication: Product used for unknown indication
     Dosage: 50MG/ML (1ML) SOL INJECTION , 0.5ML DEEP INTRAMUSCULAR , IF DOESN^T TAKE ORAL ??MAX 3 DOSES/24H
     Route: 030
  5. BENADRYL [Concomitant]
     Active Substance: DIPHENHYDRAMINE HYDROCHLORIDE
     Indication: Product used for unknown indication
     Dosage: 25 MG AS NEEDED , MAX 3 DOSES /24 H, IF DOESN^T TAKE IM
     Route: 065
  6. Asaphen EC [Concomitant]
     Indication: Product used for unknown indication
     Dosage: 80MG,  ONCE A DAY IN THE MORNING , DON^T CRUSH OR CHEW. NOT DIVISIBLE TAKE WITH MEAL OR SNACK.
     Route: 065
     Dates: start: 20210603
  7. ATIVAN [Concomitant]
     Active Substance: LORAZEPAM
     Indication: Product used for unknown indication
     Dosage: 4MG/ML (1ML), 1MG=0.25ML DEEP INTRAMUSCULAR AS NEEDED (IF DOEN^T TAKE ORAL)?MAX 3 DOSES/24H
     Route: 030
  8. ATIVAN [Concomitant]
     Active Substance: LORAZEPAM
     Indication: Product used for unknown indication
     Dosage: 1 MG TABLET AS NEEDED. (IF DOESN^T TAKE IM) ?MAX 3 DOSES/24H
     Route: 065
  9. Magensium [Concomitant]
     Indication: Product used for unknown indication
     Dosage: 1500MG = 15ML ONCE A DAY AT SUPPER
     Route: 048
  10. DULCOLAX NOS [Concomitant]
     Active Substance: BISACODYL OR DOCUSATE SODIUM
     Indication: Product used for unknown indication
     Dosage: WITH GLYCERINE , INTRA- RECTAL SUPPOSITORY, EVERY 3 DAYS
     Route: 054
  11. DEXILANT [Concomitant]
     Active Substance: DEXLANSOPRAZOLE
     Indication: Product used for unknown indication
     Dosage: 30MG = 1 CAPSULE (S), ONCE A DAY AT LUNCH
     Route: 048
     Dates: start: 20221117
  12. SENOKOT [Concomitant]
     Active Substance: SENNOSIDES
     Indication: Product used for unknown indication
     Dosage: 17.2 MG  AT BEDTIME
     Route: 048
  13. LAX  A DAY [Concomitant]
     Indication: Product used for unknown indication
     Dosage: ONE HEAPING TABLESPOON, ONCE PER DAY AS NEEDED
     Route: 065
  14. Emolax [Concomitant]
     Indication: Product used for unknown indication
     Dosage: 1 HEAPING TABLESPOON TWICE A DAY , DISSOLVE IN 250 ML WATER, JUICE, COFFEE, TEA OR SOFT DRINK
     Route: 065
  15. GLYCERIN [Concomitant]
     Active Substance: GLYCERIN
     Indication: Product used for unknown indication
     Dosage: INTRA-RECTAL SUPPOSITORY EVERY 3 DAYS WITH BISACODYL
     Route: 054
  16. CORTEF [Concomitant]
     Active Substance: HYDROCORTISONE
     Indication: Product used for unknown indication
     Dosage: 20MG ONCE A DAY IN THE MORNING
     Route: 065
     Dates: start: 20220919
  17. CORTEF [Concomitant]
     Active Substance: HYDROCORTISONE
     Indication: Product used for unknown indication
     Dosage: 5MG AT BEDTIME , TAKE WITH MEAL OR SNACK
     Route: 065
     Dates: start: 20230313
  18. CORTEF [Concomitant]
     Active Substance: HYDROCORTISONE
     Indication: Product used for unknown indication
     Dosage: 7.5MG ONCE A AT LUNCH, TAKE WITH MEAL OR SNACK.
     Route: 065
     Dates: start: 20230313
  19. GLUCOPHAGE [Concomitant]
     Active Substance: METFORMIN HYDROCHLORIDE
     Indication: Product used for unknown indication
     Dosage: 250MG TWICE A DAY AT BREAKFAST AND DINNER
     Route: 065
     Dates: start: 20220919
  20. CYANOCOBALAMIN [Concomitant]
     Active Substance: CYANOCOBALAMIN
     Indication: Product used for unknown indication
     Dosage: 1200MCG = 1 TABLET ONCE A DAY
     Route: 048
     Dates: start: 20220919
  21. SYNTHROID [Concomitant]
     Active Substance: LEVOTHYROXINE SODIUM
     Indication: Product used for unknown indication
     Dosage: 0.125MG = 1 TABLET ONCE A DAY MORNING
     Route: 048
     Dates: start: 20210603
  22. PROSCAR [Concomitant]
     Active Substance: FINASTERIDE
     Indication: Product used for unknown indication
     Dosage: 5MG = 1 TABLET ONCE A DAY, HANDLE WITH GLOVES
     Route: 048
     Dates: start: 20220919
  23. MELATONIN [Concomitant]
     Active Substance: MELATONIN
     Indication: Product used for unknown indication
     Dosage: 6 MG AT BEDTIME
     Route: 048
     Dates: start: 20220919
  24. CLOZAPINE [Suspect]
     Active Substance: CLOZAPINE
     Indication: Product used for unknown indication
     Route: 065
     Dates: start: 20230217, end: 20230312

REACTIONS (5)
  - Neutropenia [Unknown]
  - Product dispensing error [Recovered/Resolved]
  - Hepatitis [Unknown]
  - Product dispensing error [Recovered/Resolved]
  - Schizoaffective disorder [Unknown]
